FAERS Safety Report 9000963 (Version 1)
Quarter: 2013Q1

REPORT INFORMATION
  Report Type: Spontaneous
  Country: US (occurrence: None)
  Receive Date: 20130103
  Receipt Date: 20130103
  Transmission Date: 20140127
  Serious: Yes (Disabling, Other)
  Sender: FDA-Public Use
  Company Number: None

PATIENT
  Age: 55 Year
  Sex: Female
  Weight: 104.33 kg

DRUGS (2)
  1. IBANDRONATE SODIUM [Suspect]
     Indication: OSTEOPENIA
     Dosage: 1 TABLET
     Route: 048
     Dates: start: 20120801, end: 20121204
  2. AZOR [Concomitant]

REACTIONS (2)
  - Dysphonia [None]
  - Vocal cord disorder [None]
